FAERS Safety Report 10811974 (Version 6)
Quarter: 2018Q4

REPORT INFORMATION
  Report Type: Report from Study
  Country: None (occurrence: US)
  Receive Date: 20150217
  Receipt Date: 20181029
  Transmission Date: 20190204
  Serious: Yes (Hospitalization, Other)
  Sender: FDA-Public Use
  Company Number: US-ABBVIE-12P-163-0989266-00

PATIENT
  Age: 62 Year
  Sex: Female
  Weight: 81.72 kg

DRUGS (16)
  1. HUMIRA [Suspect]
     Active Substance: ADALIMUMAB
     Indication: PSORIATIC ARTHROPATHY
     Route: 065
     Dates: start: 2005, end: 2010
  2. VITAMIN C [Concomitant]
     Active Substance: ASCORBIC ACID
     Indication: PRODUCT USED FOR UNKNOWN INDICATION
  3. VITAMIN C [Concomitant]
     Active Substance: ASCORBIC ACID
  4. HYDROXYZINE [Concomitant]
     Active Substance: HYDROXYZINE HYDROCHLORIDE
     Indication: SYSTEMIC MASTOCYTOSIS
  5. METHOTREXATE. [Concomitant]
     Active Substance: METHOTREXATE
     Indication: PRODUCT USED FOR UNKNOWN INDICATION
  6. VITAMIN D [Concomitant]
     Active Substance: CHOLECALCIFEROL
     Indication: PRODUCT USED FOR UNKNOWN INDICATION
  7. VITAMIN D [Concomitant]
     Active Substance: CHOLECALCIFEROL
  8. CALCIUM [Concomitant]
     Active Substance: CALCIUM
     Indication: PRODUCT USED FOR UNKNOWN INDICATION
  9. HUMIRA [Suspect]
     Active Substance: ADALIMUMAB
     Route: 065
     Dates: start: 201611
  10. OXYCODONE [Concomitant]
     Active Substance: OXYCODONE
     Indication: PRODUCT USED FOR UNKNOWN INDICATION
  11. CALCIUM [Concomitant]
     Active Substance: CALCIUM
  12. OXYCONTIN [Concomitant]
     Active Substance: OXYCODONE HYDROCHLORIDE
     Indication: PRODUCT USED FOR UNKNOWN INDICATION
  13. ESTROGEN [Concomitant]
     Active Substance: ESTROGENS
     Indication: PRODUCT USED FOR UNKNOWN INDICATION
  14. PROGESTERONE VILLEDOT [Concomitant]
     Indication: PRODUCT USED FOR UNKNOWN INDICATION
  15. HUMIRA [Suspect]
     Active Substance: ADALIMUMAB
     Indication: CROHN^S DISEASE
     Route: 065
     Dates: start: 2010, end: 201609
  16. FOLIC ACID. [Concomitant]
     Active Substance: FOLIC ACID
     Indication: PRODUCT USED FOR UNKNOWN INDICATION

REACTIONS (56)
  - Osteoarthritis [Unknown]
  - Bone fragmentation [Not Recovered/Not Resolved]
  - Mobility decreased [Recovering/Resolving]
  - Gait inability [Recovered/Resolved]
  - Osteoarthritis [Unknown]
  - Intervertebral disc degeneration [Unknown]
  - Trigger finger [Not Recovered/Not Resolved]
  - Hypoaesthesia [Unknown]
  - Thyroid mass [Recovering/Resolving]
  - Nerve injury [Recovering/Resolving]
  - Intervertebral disc degeneration [Unknown]
  - Post procedural complication [Recovering/Resolving]
  - Exostosis [Not Recovered/Not Resolved]
  - Hyperhidrosis [Not Recovered/Not Resolved]
  - Feeling hot [Not Recovered/Not Resolved]
  - Arthralgia [Not Recovered/Not Resolved]
  - Pain in extremity [Unknown]
  - Fall [Unknown]
  - Hypothermia [Not Recovered/Not Resolved]
  - Thyroid mass [Not Recovered/Not Resolved]
  - Hip arthroplasty [Unknown]
  - Exostosis [Recovering/Resolving]
  - Joint injury [Unknown]
  - Osteoarthritis [Not Recovered/Not Resolved]
  - Spinal osteoarthritis [Not Recovered/Not Resolved]
  - Abdominal pain [Not Recovered/Not Resolved]
  - Diarrhoea [Not Recovered/Not Resolved]
  - Drug effect incomplete [Unknown]
  - Fall [Unknown]
  - Goitre [Recovering/Resolving]
  - Surgical failure [Recovered/Resolved]
  - Joint dislocation postoperative [Recovered/Resolved]
  - Chills [Not Recovered/Not Resolved]
  - Contusion [Recovering/Resolving]
  - Paraesthesia [Unknown]
  - Swelling [Recovered/Resolved]
  - Joint injury [Recovered/Resolved]
  - Arthralgia [Recovering/Resolving]
  - Hip arthroplasty [Unknown]
  - Osteoarthritis [Not Recovered/Not Resolved]
  - Neuropathy peripheral [Unknown]
  - Device deployment issue [Recovered/Resolved]
  - Foot operation [Unknown]
  - Pulmonary embolism [Unknown]
  - Joint range of motion decreased [Not Recovered/Not Resolved]
  - Colitis ulcerative [Not Recovered/Not Resolved]
  - Gait disturbance [Not Recovered/Not Resolved]
  - Vertebral osteophyte [Unknown]
  - Femoral neck fracture [Unknown]
  - Spinal osteoarthritis [Unknown]
  - Cartilage injury [Not Recovered/Not Resolved]
  - Crohn^s disease [Not Recovered/Not Resolved]
  - Rotator cuff syndrome [Not Recovered/Not Resolved]
  - Osteoarthritis [Unknown]
  - Joint noise [Not Recovered/Not Resolved]
  - Neck pain [Recovered/Resolved]

NARRATIVE: CASE EVENT DATE: 2007
